FAERS Safety Report 6230761-0 (Version None)
Quarter: 2009Q2

REPORT INFORMATION
  Report Type: 
  Country: None (occurrence: None)
  Receive Date: 20090616
  Receipt Date: 20090603
  Transmission Date: 20091009
  Serious: Yes (Other)
  Sender: FDA-Public Use
  Company Number: AU-PFIZER INC-2009222518

PATIENT

DRUGS (2)
  1. ZOLOFT [Suspect]
     Dosage: UNK
     Dates: start: 19970101, end: 19970101
  2. TRAMADOL HCL [Suspect]

REACTIONS (6)
  - COORDINATION ABNORMAL [None]
  - DRUG HYPERSENSITIVITY [None]
  - FALL [None]
  - MENTAL IMPAIRMENT [None]
  - RASH [None]
  - TREMOR [None]
